FAERS Safety Report 10272108 (Version 4)
Quarter: 2021Q4

REPORT INFORMATION
  Report Type: Report from Study
  Country: DE (occurrence: DE)
  Receive Date: 20140702
  Receipt Date: 20211102
  Transmission Date: 20220303
  Serious: Yes (Hospitalization, Other)
  Sender: FDA-Public Use
  Company Number: DE-ALEXION PHARMACEUTICALS INC.-A201302610

PATIENT
  Age: 21 Year
  Sex: Male
  Weight: 58 kg

DRUGS (13)
  1. ECULIZUMAB [Suspect]
     Active Substance: ECULIZUMAB
     Indication: Haemolytic uraemic syndrome
     Dosage: 1200 MG, Q2W
     Route: 042
     Dates: start: 20120920, end: 20131127
  2. AMLODIPINE                         /00972403/ [Concomitant]
     Indication: Hypertension
     Dosage: 10 MG, QD
     Route: 048
     Dates: start: 2012
  3. ATENOLOL [Concomitant]
     Active Substance: ATENOLOL
     Indication: Hypertension
     Dosage: 100 MG, QD
     Route: 048
     Dates: start: 2012
  4. CANDESARTAN [Concomitant]
     Active Substance: CANDESARTAN
     Indication: Hypertension
     Dosage: 8 MG, QD
     Route: 048
     Dates: start: 2012
  5. TACROLIMUS [Concomitant]
     Active Substance: TACROLIMUS
     Indication: Immunosuppressant drug therapy
     Dosage: UNK
     Route: 048
     Dates: start: 20120920
  6. METHYLPREDNISOLONE [Concomitant]
     Active Substance: METHYLPREDNISOLONE
     Indication: Immunosuppressant drug therapy
     Dosage: UNK
     Route: 048
     Dates: start: 20120920
  7. MYCOPHENOLATE MOFETIL [Concomitant]
     Active Substance: MYCOPHENOLATE MOFETIL
     Indication: Immunosuppressant drug therapy
     Dosage: UNK
     Route: 048
     Dates: start: 20120920
  8. CALCIUM                            /00751528/ [Concomitant]
     Indication: Hypocalcaemia
     Dosage: UNK
     Route: 048
     Dates: start: 2012
  9. CALCITRIOL [Concomitant]
     Active Substance: CALCITRIOL
     Indication: Hypoparathyroidism
     Dosage: UNK
     Route: 048
     Dates: start: 2012
  10. MAGNESIUM                          /00123201/ [Concomitant]
     Indication: Hypomagnesaemia
     Dosage: UNK
     Route: 048
     Dates: start: 201210
  11. LEVOTHYROXINE [Concomitant]
     Active Substance: LEVOTHYROXINE
     Indication: Hypothyroidism
     Dosage: UNK
     Route: 048
     Dates: start: 201212
  12. PENICILLIN                         /00000901/ [Concomitant]
     Indication: Prophylaxis
     Dosage: UNK
     Route: 048
     Dates: start: 20120920
  13. DOXAZOSIN                          /00639302/ [Concomitant]
     Indication: Hypertension
     Dosage: 4 MG, QD
     Route: 048
     Dates: start: 2012

REACTIONS (2)
  - Renal impairment [Recovered/Resolved with Sequelae]
  - Drug ineffective [Unknown]

NARRATIVE: CASE EVENT DATE: 20131001
